FAERS Safety Report 10351411 (Version 2)
Quarter: 2014Q3

REPORT INFORMATION
  Report Type: Report from Study
  Country: KR (occurrence: KR)
  Receive Date: 20140730
  Receipt Date: 20140730
  Transmission Date: 20150326
  Serious: Yes (Hospitalization)
  Sender: FDA-Public Use
  Company Number: KR-BRISTOL-MYERS SQUIBB COMPANY-21229083

PATIENT
  Age: 67 Year
  Sex: Male

DRUGS (11)
  1. PACLITAXEL. [Suspect]
     Active Substance: PACLITAXEL
     Indication: NON-SMALL CELL LUNG CANCER
     Dosage: 12-MAY-2014
     Route: 042
     Dates: start: 20140421, end: 20140421
  2. MEGESTROL [Concomitant]
     Active Substance: MEGESTROL
     Indication: DECREASED APPETITE
     Dosage: 07APR14-UNK
     Route: 048
     Dates: start: 20140407
  3. DUROGESIC [Concomitant]
     Active Substance: FENTANYL
     Indication: CHEST PAIN
     Dosage: 18APR14-UNK
     Dates: start: 20140418
  4. OXYCONTIN [Concomitant]
     Active Substance: OXYCODONE HYDROCHLORIDE
     Indication: CHEST PAIN
     Dosage: 21APR14-UNK
     Route: 048
     Dates: start: 20140421
  5. MAGNESIUM OXIDE. [Concomitant]
     Active Substance: MAGNESIUM OXIDE
     Indication: CONSTIPATION
     Dosage: 15APR14-UNK
     Route: 048
     Dates: start: 20140415
  6. CARBOPLATIN. [Suspect]
     Active Substance: CARBOPLATIN
     Indication: NON-SMALL CELL LUNG CANCER
     Dosage: 1DF=6 MG/ML?12-MAY-2014
     Route: 042
     Dates: start: 20140421, end: 20140421
  7. PLACEBO [Suspect]
     Active Substance: UNSPECIFIED INGREDIENT
     Dates: start: 20140421, end: 20140702
  8. BLINDED: AMG 706 [Suspect]
     Active Substance: MOTESANIB DIPHOSPHATE
     Indication: NON-SMALL CELL LUNG CANCER
     Dosage: THERAPY:ONGOING?23APR14-26APR14:01JUN14
     Route: 048
     Dates: start: 20140421, end: 20140702
  9. SPIRIVA [Concomitant]
     Active Substance: TIOTROPIUM BROMIDE MONOHYDRATE
     Indication: DYSPNOEA
     Dosage: 25MAR14-UNK
     Route: 055
     Dates: start: 20140325
  10. DUPHALAC [Concomitant]
     Active Substance: LACTULOSE
     Indication: CONSTIPATION
     Dosage: 15APR14-UNK
     Route: 048
     Dates: start: 20140415
  11. BISACODYL. [Concomitant]
     Active Substance: BISACODYL
     Indication: CONSTIPATION
     Route: 048
     Dates: start: 20140416

REACTIONS (1)
  - Pneumonia [Recovered/Resolved]

NARRATIVE: CASE EVENT DATE: 20140627
